FAERS Safety Report 7012419-3 (Version None)
Quarter: 2010Q3

REPORT INFORMATION
  Report Type: 
  Country: None (occurrence: None)
  Receive Date: 20100924
  Receipt Date: 20100917
  Transmission Date: 20110219
  Serious: Yes (Other)
  Sender: FDA-Public Use
  Company Number: BR-JNJFOC-20100906562

PATIENT
  Age: 50 Year
  Sex: Female

DRUGS (1)
  1. HALDOL [Suspect]
     Indication: HALLUCINATION
     Route: 065

REACTIONS (1)
  - AMNESIA [None]
